FAERS Safety Report 6545965-7 (Version None)
Quarter: 2010Q1

REPORT INFORMATION
  Report Type: 
  Country: None (occurrence: None)
  Receive Date: 20100121
  Receipt Date: 20100111
  Transmission Date: 20100710
  Serious: Yes (Hospitalization)
  Sender: FDA-Public Use
  Company Number: KR-GILEAD-E2B_00000548

PATIENT
  Sex: Male

DRUGS (5)
  1. HEPSERA [Suspect]
     Indication: HEPATITIS B
     Dosage: 10MG PER DAY
     Route: 048
     Dates: start: 20070806
  2. VITAMIN B COMPLEX CAP [Concomitant]
     Dates: start: 20010409
  3. LAMIVUDINE [Concomitant]
     Indication: ANTIVIRAL TREATMENT
     Dates: start: 20050321
  4. TAMIPOOL [Concomitant]
     Indication: VITAMIN SUPPLEMENTATION
     Dates: start: 20070827, end: 20070827
  5. RANITIDINE [Concomitant]
     Dates: start: 20070827, end: 20070827

REACTIONS (3)
  - ABDOMINAL DISCOMFORT [None]
  - JAUNDICE [None]
  - RASH [None]
